FAERS Safety Report 6222374-1 (Version None)
Quarter: 2009Q2

REPORT INFORMATION
  Report Type: 
  Country: None (occurrence: None)
  Receive Date: 20090608
  Receipt Date: 20090522
  Transmission Date: 20091009
  Serious: Yes (Hospitalization)
  Sender: FDA-Public Use
  Company Number: IE-GENENTECH-274110

PATIENT
  Sex: Female

DRUGS (8)
  1. TRASTUZUMAB [Suspect]
     Indication: BREAST CANCER
     Dosage: 4 MG/KG, SINGLE
     Route: 042
     Dates: start: 20080917
  2. TRASTUZUMAB [Suspect]
     Dosage: 2 MG/KG, 1/WEEK
     Route: 042
     Dates: start: 20080924, end: 20081203
  3. TRASTUZUMAB [Suspect]
     Dosage: UNK
     Route: 042
     Dates: start: 20090323, end: 20090423
  4. DOXORUBICIN HCL [Suspect]
     Indication: DRUG USE FOR UNKNOWN INDICATION
     Dosage: UNK
     Route: 065
  5. PACLITAXEL [Suspect]
     Indication: BREAST CANCER
     Dosage: UNK
     Route: 042
  6. TAMOXIFEN CITRATE [Concomitant]
     Indication: DRUG USE FOR UNKNOWN INDICATION
     Dosage: UNK
     Dates: start: 20080915
  7. FERROUS FUMARATE [Concomitant]
     Indication: DRUG USE FOR UNKNOWN INDICATION
     Dosage: UNK
     Dates: start: 20081125
  8. GOSERELIN ACETATE [Concomitant]
     Indication: DRUG USE FOR UNKNOWN INDICATION
     Dosage: UNK
     Dates: start: 20080917

REACTIONS (3)
  - CHEST PAIN [None]
  - DYSPNOEA [None]
  - EJECTION FRACTION DECREASED [None]
